FAERS Safety Report 7901545-X (Version None)
Quarter: 2011Q4

REPORT INFORMATION
  Report Type: 
  Country: None (occurrence: None)
  Receive Date: 20111108
  Receipt Date: 20111102
  Transmission Date: 20120403
  Serious: Yes (Life-Threatening, Other)
  Sender: FDA-Public Use
  Company Number: US-SANOFI-AVENTIS-2011SA072119

PATIENT
  Age: 76 Year
  Sex: Male

DRUGS (3)
  1. MULTI-VITAMINS [Concomitant]
     Dates: end: 20110201
  2. LIPITOR [Concomitant]
     Dates: end: 20110201
  3. NILUTAMIDE [Suspect]
     Dates: start: 20101201, end: 20110201

REACTIONS (4)
  - DECREASED APPETITE [None]
  - DYSPNOEA [None]
  - ACUTE HEPATIC FAILURE [None]
  - DISEASE PROGRESSION [None]
